FAERS Safety Report 11380152 (Version 1)
Quarter: 2015Q3

REPORT INFORMATION
  Report Type: Spontaneous
  Country: US (occurrence: None)
  Receive Date: 20150813
  Receipt Date: 20150813
  Transmission Date: 20151125
  Serious: Yes (Hospitalization)
  Sender: FDA-Public Use
  Company Number: None

PATIENT
  Age: 56 Year
  Sex: Female

DRUGS (8)
  1. VICTOZA [Concomitant]
     Active Substance: LIRAGLUTIDE
  2. ATORVASTATIN [Concomitant]
     Active Substance: ATORVASTATIN
  3. OMEPRAZOLE. [Concomitant]
     Active Substance: OMEPRAZOLE
  4. MERCAPTOPURINE. [Concomitant]
     Active Substance: MERCAPTOPURINE
  5. CANDIDA ALBICANS. [Suspect]
     Active Substance: CANDIDA ALBICANS
     Indication: SKIN PAPILLOMA
     Route: 023
     Dates: start: 20150806, end: 20150806
  6. HUMULIN NOS [Concomitant]
     Active Substance: INSULIN HUMAN
  7. PENTASA [Concomitant]
     Active Substance: MESALAMINE
  8. ACTOS [Concomitant]
     Active Substance: PIOGLITAZONE HYDROCHLORIDE

REACTIONS (8)
  - Application site pain [None]
  - Product label issue [None]
  - Hypersensitivity [None]
  - Application site erythema [None]
  - Application site discolouration [None]
  - Inflammation [None]
  - Off label use [None]
  - Application site swelling [None]

NARRATIVE: CASE EVENT DATE: 20150806
